FAERS Safety Report 11649422 (Version 1)
Quarter: 2015Q4

REPORT INFORMATION
  Report Type: Report from Study
  Country: AU (occurrence: AU)
  Receive Date: 20151021
  Receipt Date: 20151021
  Transmission Date: 20160304
  Serious: Yes (Other)
  Sender: FDA-Public Use
  Company Number: AU-ABBVIE-15K-008-1483127-00

PATIENT
  Sex: Male

DRUGS (1)
  1. HUMIRA [Suspect]
     Active Substance: ADALIMUMAB
     Indication: CROHN^S DISEASE
     Route: 058
     Dates: end: 201509

REACTIONS (17)
  - Renal failure [Recovering/Resolving]
  - Drug ineffective [Recovering/Resolving]
  - Diarrhoea [Recovering/Resolving]
  - Glossitis [Unknown]
  - Hepatic failure [Recovering/Resolving]
  - Purulence [Recovering/Resolving]
  - Oral discomfort [Recovering/Resolving]
  - Swollen tongue [Recovering/Resolving]
  - Infective glossitis [Recovering/Resolving]
  - Hypogeusia [Recovering/Resolving]
  - Rash vesicular [Recovered/Resolved]
  - Bowel movement irregularity [Recovering/Resolving]
  - Oral discomfort [Unknown]
  - Rash morbilliform [Recovered/Resolved]
  - Bruxism [Unknown]
  - Tongue biting [Unknown]
  - Constipation [Recovering/Resolving]
